FAERS Safety Report 23684398 (Version 1)
Quarter: 2024Q1

REPORT INFORMATION
  Report Type: Spontaneous
  Country: US (occurrence: US)
  Receive Date: 20240328
  Receipt Date: 20240328
  Transmission Date: 20240410
  Serious: No
  Sender: FDA-Public Use
  Company Number: US-TEVA-VS-3158371

PATIENT
  Age: 69 Year
  Sex: Female

DRUGS (2)
  1. PREDNISONE [Suspect]
     Active Substance: PREDNISONE
     Indication: Product used for unknown indication
     Route: 065
  2. HYDROXYZINE HYDROCHLORIDE [Suspect]
     Active Substance: HYDROXYZINE HYDROCHLORIDE

REACTIONS (5)
  - Food allergy [Unknown]
  - Skin wound [Unknown]
  - Gastroenteritis viral [Unknown]
  - Oral contraception [Unknown]
  - Exposure to allergen [Unknown]
